FAERS Safety Report 7921432 (Version 4)
Quarter: 2013Q1

REPORT INFORMATION
  Report Type: Spontaneous
  Country: US (occurrence: US)
  Receive Date: 20110429
  Receipt Date: 20130221
  Transmission Date: 20140127
  Serious: Yes (Other)
  Sender: FDA-Public Use
  Company Number: US-ASTRAZENECA-2010SE32525

PATIENT
  Age: 54 Year
  Sex: Male

DRUGS (2)
  1. NEXIUM [Suspect]
     Route: 048
  2. SODIUM BICARBONATE [Suspect]
     Route: 065

REACTIONS (13)
  - Haematochezia [Unknown]
  - Gastric perforation [Unknown]
  - Gastrooesophageal reflux disease [Unknown]
  - Choking [Unknown]
  - Sleep disorder due to a general medical condition [Unknown]
  - Regurgitation [Unknown]
  - Nausea [Unknown]
  - Malaise [Unknown]
  - Abdominal discomfort [Unknown]
  - Vomiting [Unknown]
  - Insomnia [Unknown]
  - Drug dose omission [Unknown]
  - Intentional drug misuse [Unknown]
